FAERS Safety Report 7713397-1 (Version None)
Quarter: 2011Q3

REPORT INFORMATION
  Report Type: 
  Country: None (occurrence: None)
  Receive Date: 20110826
  Receipt Date: 20110824
  Transmission Date: 20111222
  Serious: Yes (Life-Threatening)
  Sender: FDA-Public Use
  Company Number: US-BAYER-2011-059971

PATIENT
  Age: 43 Year
  Sex: Female
  Weight: 66 kg

DRUGS (3)
  1. YAZ [Suspect]
     Indication: MIGRAINE
  2. YAZ [Suspect]
     Indication: CONTRACEPTION
     Dosage: UNK
     Dates: start: 20071201, end: 20081201
  3. MAXALT [Concomitant]
     Indication: MIGRAINE

REACTIONS (3)
  - THROMBOPHLEBITIS SUPERFICIAL [None]
  - ANXIETY [None]
  - PAIN [None]
